FAERS Safety Report 11901844 (Version 2)
Quarter: 2016Q1

REPORT INFORMATION
  Report Type: Spontaneous
  Country: JP (occurrence: JP)
  Receive Date: 20160108
  Receipt Date: 20160225
  Transmission Date: 20160526
  Serious: Yes (Life-Threatening, Hospitalization, Other)
  Sender: FDA-Public Use
  Company Number: JP-PFIZER INC-2016000874

PATIENT
  Age: 82 Year
  Sex: Female
  Weight: 56 kg

DRUGS (15)
  1. LEVOTHYROXINE. [Concomitant]
     Active Substance: LEVOTHYROXINE
     Indication: HYPOTHYROIDISM
     Dosage: 62.5 UG, 1X/DAY
     Route: 048
  2. NEUROTROPIN [Concomitant]
     Active Substance: NEUROTROPIN
     Indication: INTERVERTEBRAL DISC PROTRUSION
     Dosage: 8 IU, 2X/DAY
     Route: 048
     Dates: start: 20140303
  3. LYRICA [Suspect]
     Active Substance: PREGABALIN
     Indication: PAIN IN EXTREMITY
  4. AMLODIPINE BESILATE [Suspect]
     Active Substance: AMLODIPINE BESYLATE
     Indication: HYPERTENSION
     Dosage: 2.5 MG, 1X/DAY
     Route: 048
     Dates: end: 20150409
  5. PRAVASTATIN [Concomitant]
     Active Substance: PRAVASTATIN\PRAVASTATIN SODIUM
     Indication: HYPERLIPIDAEMIA
     Dosage: 5 MG, 1X/DAY
     Route: 048
  6. LIMAPROST [Concomitant]
     Active Substance: LIMAPROST
     Indication: PAIN IN EXTREMITY
     Dosage: 5 UG, 2X/DAY
     Route: 048
  7. LYRICA [Suspect]
     Active Substance: PREGABALIN
     Indication: INTERVERTEBRAL DISC PROTRUSION
     Dosage: 75 MG DAILY
     Route: 048
     Dates: start: 20140127, end: 20141019
  8. CELECOX [Concomitant]
     Active Substance: CELECOXIB
     Indication: FOOT FRACTURE
  9. LIMAPROST [Concomitant]
     Active Substance: LIMAPROST
     Indication: HYPOAESTHESIA
  10. COBAMAMIDE [Concomitant]
     Active Substance: COBAMAMIDE
     Indication: NEURALGIA
     Dosage: 500 UG, 2X/DAY
     Route: 048
  11. REBAMIPIDE [Concomitant]
     Active Substance: REBAMIPIDE
     Indication: PROPHYLAXIS AGAINST GASTROINTESTINAL ULCER
     Dosage: 100 MG, 2X/DAY
     Route: 048
     Dates: start: 20130316
  12. CELECOX [Concomitant]
     Active Substance: CELECOXIB
     Indication: INTERVERTEBRAL DISC PROTRUSION
     Dosage: 100 MG, 2X/DAY
     Route: 048
     Dates: start: 20130316
  13. LYRICA [Suspect]
     Active Substance: PREGABALIN
     Indication: FOOT FRACTURE
     Dosage: 100 MG 1X/DAY
     Route: 048
     Dates: start: 20141020, end: 20150215
  14. NEUROTROPIN [Concomitant]
     Active Substance: NEUROTROPIN
     Indication: FOOT FRACTURE
  15. LYRICA [Suspect]
     Active Substance: PREGABALIN
     Indication: HYPOAESTHESIA
     Dosage: MORNING: 25 MG AND EVENING: 75 MG
     Route: 048
     Dates: start: 20150216, end: 20150409

REACTIONS (10)
  - Loss of consciousness [Recovering/Resolving]
  - Fall [Recovering/Resolving]
  - Syncope [Recovered/Resolved]
  - Dizziness [Recovering/Resolving]
  - Drug ineffective [Unknown]
  - Renal impairment [Unknown]
  - Bradycardia [Recovered/Resolved]
  - Tension headache [Recovering/Resolving]
  - Chest discomfort [Recovering/Resolving]
  - Overdose [Unknown]

NARRATIVE: CASE EVENT DATE: 20141020
